FAERS Safety Report 9827343 (Version 1)
Quarter: 2013Q4

REPORT INFORMATION
  Report Type: Spontaneous
  Country: US (occurrence: None)
  Receive Date: 20131120
  Receipt Date: 20131120
  Transmission Date: 20140711
  Serious: No
  Sender: FDA-Public Use
  Company Number: 1000047661

PATIENT
  Age: 54 Year
  Sex: Female

DRUGS (5)
  1. VIIBRYD [Suspect]
     Indication: DEPRESSION
     Route: 048
     Dates: start: 20130802, end: 20130806
  2. LUNESTA(ESZOPICLONE)(ESZOPICLONE) [Concomitant]
  3. LEVOTHYROXINE(LEVOTHYROXINE SODIUM)(LEVOTHYROXINE SODIUM) [Concomitant]
  4. OMEPRAZOLE(OMEPRAZOLE)(OMEPRAZOLE) [Concomitant]
  5. CYCLOBENZAPRINE(CYCLOBENZAPRINE)(CYCLOBENZAPRINE) [Concomitant]

REACTIONS (1)
  - Haematuria [None]
